FAERS Safety Report 10187170 (Version 1)
Quarter: 2014Q2

REPORT INFORMATION
  Report Type: Spontaneous
  Country: IT (occurrence: None)
  Receive Date: 20140520
  Receipt Date: 20140520
  Transmission Date: 20141212
  Serious: Yes (Other)
  Sender: FDA-Public Use
  Company Number: AUR-APL-2014-05586

PATIENT
  Age: 84 Year
  Sex: Female

DRUGS (6)
  1. METFORMIN [Suspect]
     Indication: DIABETES MELLITUS
     Route: 048
     Dates: start: 20130101, end: 20130515
  2. REPAGLINIDE (REPAGLINIDE) [Suspect]
     Indication: DIABETES MELLITUS
     Route: 048
     Dates: start: 20130101, end: 20130515
  3. CARDIOASPIRIN (ACETYLSALICYLIC ACID) [Concomitant]
  4. SELEPARINA [Concomitant]
  5. SIMVASTATIN (SIMVASTATIN) [Concomitant]
  6. AMLODIPINE (AMLODIPINE) [Concomitant]

REACTIONS (2)
  - Syncope [None]
  - Hypoglycaemia [None]
